FAERS Safety Report 5658424-0 (Version None)
Quarter: 2008Q1

REPORT INFORMATION
  Report Type: 
  Country: None (occurrence: None)
  Receive Date: 20080310
  Receipt Date: 20070503
  Transmission Date: 20080703
  Serious: No
  Sender: FDA-Public Use
  Company Number: US-BAYER-200710497BCC

PATIENT
  Age: 68 Year
  Sex: Female
  Weight: 94 kg

DRUGS (8)
  1. ALEVE [Suspect]
     Indication: ARTHRALGIA
     Dosage: TOTAL DAILY DOSE: 880 MG  UNIT DOSE: 220 MG
     Route: 048
     Dates: start: 20050101
  2. NEXIUM [Suspect]
     Indication: DYSPEPSIA
     Dates: start: 20050101
  3. GABAPENTIN [Concomitant]
  4. DIOVAN HCT [Concomitant]
  5. GLUCOTROL XL [Concomitant]
  6. DALMANE [Concomitant]
  7. LUNESTA [Concomitant]
  8. ZOCOR [Concomitant]

REACTIONS (2)
  - BLOOD CHOLESTEROL INCREASED [None]
  - GASTROOESOPHAGEAL REFLUX DISEASE [None]
